FAERS Safety Report 17684629 (Version 2)
Quarter: 2020Q2

REPORT INFORMATION
  Report Type: Spontaneous
  Country: IT (occurrence: IT)
  Receive Date: 20200420
  Receipt Date: 20200423
  Transmission Date: 20200714
  Serious: Yes (Other)
  Sender: FDA-Public Use
  Company Number: IT-MYLANLABS-2020M1039523

PATIENT
  Age: 30 Year
  Sex: Female

DRUGS (5)
  1. AZATHIOPRINE. [Concomitant]
     Active Substance: AZATHIOPRINE
     Indication: MYASTHENIA GRAVIS
     Route: 065
  2. AMITRIPTYLINE [Suspect]
     Active Substance: AMITRIPTYLINE
     Indication: MIGRAINE PROPHYLAXIS
     Route: 048
  3. PREDNISONE. [Suspect]
     Active Substance: PREDNISONE
     Indication: MYASTHENIA GRAVIS
     Route: 065
  4. TOPIRAMATE. [Concomitant]
     Active Substance: TOPIRAMATE
     Indication: MIGRAINE PROPHYLAXIS
     Route: 048
  5. LANREOTIDE [Concomitant]
     Active Substance: LANREOTIDE
     Indication: THYMOMA
     Route: 065

REACTIONS (5)
  - Obesity [Recovered/Resolved]
  - Treatment failure [Unknown]
  - Cataract [Recovered/Resolved]
  - Osteoporosis [Recovered/Resolved]
  - Cushing^s syndrome [Recovered/Resolved]
